FAERS Safety Report 26108307 (Version 1)
Quarter: 2025Q4

REPORT INFORMATION
  Report Type: Spontaneous
  Country: JP (occurrence: JP)
  Receive Date: 20251201
  Receipt Date: 20251201
  Transmission Date: 20260117
  Serious: Yes (Death, Hospitalization)
  Sender: MYLAN
  Company Number: JP-VIATRISJAPAN-2025M1100348AA

PATIENT
  Age: 74 Year
  Sex: Male

DRUGS (3)
  1. ANHIBA [Suspect]
     Active Substance: ACETAMINOPHEN
     Indication: Analgesic therapy
  2. PREDNISOLONE [Suspect]
     Active Substance: PREDNISOLONE
     Indication: Acute hepatic failure
     Dosage: 500 MILLIGRAM
  3. PREDNISOLONE [Suspect]
     Active Substance: PREDNISOLONE
     Dosage: 50 MILLIGRAM, QD

REACTIONS (2)
  - Drug reaction with eosinophilia and systemic symptoms [Fatal]
  - Acute hepatic failure [Fatal]
